FAERS Safety Report 21728894 (Version 1)
Quarter: 2022Q4

REPORT INFORMATION
  Report Type: Spontaneous
  Country: US (occurrence: US)
  Receive Date: 20221214
  Receipt Date: 20221214
  Transmission Date: 20230113
  Serious: No
  Sender: FDA-Public Use
  Company Number: US-ALLERGAN-2211945US

PATIENT

DRUGS (1)
  1. DALVANCE [Suspect]
     Active Substance: DALBAVANCIN
     Indication: Medical device site infection
     Dosage: 1500 MG EVERY TWO WEEKS
     Route: 042
     Dates: start: 202202

REACTIONS (3)
  - Tinnitus [Unknown]
  - Vertigo [Unknown]
  - Dizziness [Unknown]
